FAERS Safety Report 10722620 (Version 1)
Quarter: 2015Q1

REPORT INFORMATION
  Report Type: Spontaneous
  Country: CA (occurrence: CA)
  Receive Date: 20150120
  Receipt Date: 20150120
  Transmission Date: 20150721
  Serious: Yes (Congenital Anomaly)
  Sender: FDA-Public Use
  Company Number: CA-ROCHE-1522734

PATIENT
  Sex: Male
  Weight: 2 kg

DRUGS (6)
  1. CLONAZEPAM. [Suspect]
     Active Substance: CLONAZEPAM
     Indication: EXPOSURE DURING PREGNANCY
     Route: 064
  2. CYMBALTA [Suspect]
     Active Substance: DULOXETINE HYDROCHLORIDE
     Indication: EXPOSURE DURING PREGNANCY
     Route: 064
  3. TRAMADOL HYDROCHLORIDE. [Suspect]
     Active Substance: TRAMADOL HYDROCHLORIDE
     Indication: EXPOSURE DURING PREGNANCY
     Route: 048
  4. QUETIAPINE [Suspect]
     Active Substance: QUETIAPINE
     Indication: EXPOSURE DURING PREGNANCY
     Route: 064
  5. BUPROPION [Suspect]
     Active Substance: BUPROPION
     Indication: EXPOSURE DURING PREGNANCY
     Route: 064
  6. AMITRIPTYLINE [Suspect]
     Active Substance: AMITRIPTYLINE
     Indication: EXPOSURE DURING PREGNANCY
     Route: 064

REACTIONS (4)
  - Foetal exposure during pregnancy [Unknown]
  - Pulmonary valve disease [Recovering/Resolving]
  - Transposition of the great vessels [Recovering/Resolving]
  - Ventricular hypoplasia [Recovering/Resolving]
